FAERS Safety Report 14733096 (Version 1)
Quarter: 2018Q2

REPORT INFORMATION
  Report Type: Spontaneous
  Country: CN (occurrence: CN)
  Receive Date: 20180409
  Receipt Date: 20180409
  Transmission Date: 20180711
  Serious: Yes (Congenital Anomaly, Other)
  Sender: FDA-Public Use
  Company Number: CN-MERCK KGAA-2045350

PATIENT
  Sex: Female
  Weight: 2.05 kg

DRUGS (1)
  1. NOVOTHYROX [Suspect]
     Active Substance: LEVOTHYROXINE SODIUM
     Indication: HYPOTHYROIDISM

REACTIONS (5)
  - Polydactyly [None]
  - Foetal exposure during pregnancy [Recovered/Resolved]
  - Asthenia [None]
  - Premature baby [Recovered/Resolved]
  - Low birth weight baby [None]
